FAERS Safety Report 26072201 (Version 1)
Quarter: 2025Q4

REPORT INFORMATION
  Report Type: Spontaneous
  Country: EU (occurrence: EU)
  Receive Date: 20251120
  Receipt Date: 20251120
  Transmission Date: 20260118
  Serious: Yes (Other)
  Sender: ASTELLAS
  Company Number: EU-ASTELLAS-2025-AER-063041

PATIENT
  Age: 44 Year
  Sex: Male

DRUGS (4)
  1. XOSPATA [Suspect]
     Active Substance: GILTERITINIB
     Indication: Acute myeloid leukaemia recurrent
     Dosage: FIRST CYCLE
     Route: 048
  2. XOSPATA [Suspect]
     Active Substance: GILTERITINIB
     Dosage: SECOND CYCLE
     Route: 048
  3. XOSPATA [Suspect]
     Active Substance: GILTERITINIB
     Dosage: THIRD CYCLE
     Route: 048
  4. XOSPATA [Suspect]
     Active Substance: GILTERITINIB
     Dosage: 4 CYCLE
     Route: 048

REACTIONS (2)
  - Febrile neutropenia [Unknown]
  - Pneumonia [Unknown]
